FAERS Safety Report 6945268-2 (Version None)
Quarter: 2010Q3

REPORT INFORMATION
  Report Type: 
  Country: None (occurrence: None)
  Receive Date: 20100827
  Receipt Date: 20100715
  Transmission Date: 20110219
  Serious: No
  Sender: FDA-Public Use
  Company Number: US-KINGPHARMUSA00001-K201000890

PATIENT
  Age: 83 Year
  Sex: Female
  Weight: 67.12 kg

DRUGS (6)
  1. FLECTOR [Suspect]
     Indication: NECK PAIN
     Dosage: 1 PATCH, SINGLE
     Route: 061
     Dates: start: 20100713, end: 20100713
  2. FLECTOR [Suspect]
     Indication: ARTHRITIS
  3. PAXIL [Concomitant]
  4. VALIUM [Concomitant]
  5. TENORMIN [Concomitant]
  6. NEXIUM [Concomitant]

REACTIONS (2)
  - APPLICATION SITE PRURITUS [None]
  - PRURITUS GENERALISED [None]
